FAERS Safety Report 11815137 (Version 2)
Quarter: 2016Q1

REPORT INFORMATION
  Report Type: Spontaneous
  Country: US (occurrence: US)
  Receive Date: 20151209
  Receipt Date: 20160314
  Transmission Date: 20160525
  Serious: No
  Sender: FDA-Public Use
  Company Number: US-SA-2015SA172025

PATIENT
  Age: 68 Year
  Sex: Male

DRUGS (17)
  1. TAMSULOSIN [Concomitant]
     Active Substance: TAMSULOSIN
  2. GABAPENTIN. [Concomitant]
     Active Substance: GABAPENTIN
  3. TORSEMIDE. [Concomitant]
     Active Substance: TORSEMIDE
  4. TOUJEO [Suspect]
     Active Substance: INSULIN GLARGINE
     Indication: DIABETES MELLITUS
     Dosage: DOSE:58 UNIT(S)
     Route: 065
     Dates: start: 201510, end: 201510
  5. SOLOSTAR [Concomitant]
     Active Substance: DEVICE
     Indication: DIABETES MELLITUS
     Dates: start: 201510, end: 201510
  6. LANTUS [Concomitant]
     Active Substance: INSULIN GLARGINE
     Dosage: DOSE:58 UNIT(S)
  7. ALLOPURINOL. [Concomitant]
     Active Substance: ALLOPURINOL
  8. SOLOSTAR [Concomitant]
     Active Substance: DEVICE
     Indication: DIABETES MELLITUS
     Dates: start: 201510, end: 201510
  9. LANTUS [Concomitant]
     Active Substance: INSULIN GLARGINE
  10. PRAVASTATIN [Concomitant]
     Active Substance: PRAVASTATIN\PRAVASTATIN SODIUM
     Dates: start: 2012
  11. METOPROLOL. [Concomitant]
     Active Substance: METOPROLOL
  12. CLONAZEPAM. [Concomitant]
     Active Substance: CLONAZEPAM
  13. OMEPRAZOLE. [Concomitant]
     Active Substance: OMEPRAZOLE
  14. TOUJEO [Suspect]
     Active Substance: INSULIN GLARGINE
     Indication: DIABETES MELLITUS
     Dosage: DOSE:62 UNIT(S)
     Route: 065
     Dates: start: 201510, end: 201510
  15. DULOXETINE. [Concomitant]
     Active Substance: DULOXETINE
  16. MEXILETINE [Concomitant]
     Active Substance: MEXILETINE
     Dosage: 150 MG, 3 TIMES PER DAY
  17. LISINOPRIL. [Concomitant]
     Active Substance: LISINOPRIL

REACTIONS (6)
  - Dyspnoea [Recovered/Resolved]
  - Myalgia [Recovered/Resolved]
  - Blood glucose increased [Unknown]
  - Odynophagia [Recovered/Resolved]
  - Dysphagia [Recovered/Resolved]
  - Chest discomfort [Recovered/Resolved]

NARRATIVE: CASE EVENT DATE: 201510
